FAERS Safety Report 11967132 (Version 1)
Quarter: 2016Q1

REPORT INFORMATION
  Report Type: Spontaneous
  Country: US (occurrence: US)
  Receive Date: 20160127
  Receipt Date: 20160127
  Transmission Date: 20160526
  Serious: No
  Sender: FDA-Public Use
  Company Number: US-PFIZER INC-2015473270

PATIENT
  Age: 50 Year
  Sex: Female
  Weight: 46 kg

DRUGS (2)
  1. ADVIL PM [Suspect]
     Active Substance: DIPHENHYDRAMINE CITRATE\IBUPROFEN
     Indication: SLEEP DISORDER
  2. ADVIL PM [Suspect]
     Active Substance: DIPHENHYDRAMINE CITRATE\IBUPROFEN
     Indication: BACK PAIN
     Dosage: 1 DF, SINGLE; ONE 200MG IBUPROFEN/38MG SLEEP AID CAPLET BY MOUTH
     Route: 048
     Dates: start: 2015, end: 2015

REACTIONS (3)
  - Tremor [Recovered/Resolved]
  - Intentional product use issue [Unknown]
  - Poor quality sleep [Recovered/Resolved]

NARRATIVE: CASE EVENT DATE: 2015
